FAERS Safety Report 4809169-8 (Version None)
Quarter: 2005Q4

REPORT INFORMATION
  Report Type: 
  Country: None (occurrence: None)
  Receive Date: 20051021
  Receipt Date: 20021024
  Transmission Date: 20060501
  Serious: No
  Sender: FDA-Public Use
  Company Number: EWC021032865

PATIENT
  Age: 65 Year
  Sex: Male

DRUGS (8)
  1. OLANZAPINE [Suspect]
     Indication: CATATONIA
     Dosage: 10 MG/DAY
     Dates: start: 20021001
  2. OLANZAPINE [Suspect]
     Indication: PARANOIA
     Dosage: 10 MG/DAY
     Dates: start: 20021001
  3. OLANZAPINE [Suspect]
     Indication: SCHIZOPHRENIA
     Dosage: 10 MG/DAY
     Dates: start: 20021001
  4. HALOPERIDOL [Concomitant]
  5. NORVASC [Concomitant]
  6. TIATRAL (ALOXIPRIN) [Concomitant]
  7. SELIPRAN (PRAVASTATIN SODIUM) [Concomitant]
  8. ZESTRIL [Concomitant]

REACTIONS (2)
  - DRUG INTERACTION [None]
  - EOSINOPHILIA [None]
